FAERS Safety Report 24026838 (Version 2)
Quarter: 2025Q1

REPORT INFORMATION
  Report Type: Report from Study
  Country: IN (occurrence: IN)
  Receive Date: 20240628
  Receipt Date: 20250305
  Transmission Date: 20250409
  Serious: Yes (Other)
  Sender: ROCHE
  Company Number: IN-ROCHE-3554705

PATIENT
  Age: 48 Year
  Sex: Male
  Weight: 76.9 kg

DRUGS (2)
  1. ALECENSA [Suspect]
     Active Substance: ALECTINIB HYDROCHLORIDE
     Indication: Lung adenocarcinoma
     Route: 048
  2. ALECENSA [Suspect]
     Active Substance: ALECTINIB HYDROCHLORIDE
     Route: 048

REACTIONS (5)
  - Nasopharyngitis [Unknown]
  - Cough [Unknown]
  - Metastases to lung [Unknown]
  - Lymphadenopathy [Unknown]
  - Disease progression [Unknown]
